FAERS Safety Report 18286211 (Version 1)
Quarter: 2020Q3

REPORT INFORMATION
  Report Type: Spontaneous
  Country: US (occurrence: US)
  Receive Date: 20200919
  Receipt Date: 20200919
  Transmission Date: 20201103
  Serious: No
  Sender: FDA-Public Use
  Company Number: US-TEVA-2020-US-1829297

PATIENT
  Age: 59 Year
  Sex: Male

DRUGS (1)
  1. SOTALOL TEVA [Suspect]
     Active Substance: SOTALOL HYDROCHLORIDE
     Indication: HEART RATE INCREASED
     Route: 065

REACTIONS (1)
  - Asthenia [Unknown]
